FAERS Safety Report 9701695 (Version 1)
Quarter: 2013Q4

REPORT INFORMATION
  Report Type: Spontaneous
  Country: US (occurrence: US)
  Receive Date: 20131119
  Receipt Date: 20131119
  Transmission Date: 20140711
  Serious: No
  Sender: FDA-Public Use
  Company Number: US-SAVIENT-2013S1000051

PATIENT
  Age: 59 Year
  Sex: Male

DRUGS (3)
  1. KRYSTEXXA [Suspect]
     Indication: PRODUCT USED FOR UNKNOWN INDICATION
     Dates: start: 20130508, end: 20130508
  2. KRYSTEXXA [Suspect]
     Dates: start: 2013, end: 2013
  3. KRYSTEXXA [Suspect]
     Dates: start: 20130606, end: 20130606

REACTIONS (1)
  - Gout [Not Recovered/Not Resolved]
